FAERS Safety Report 5445774-6 (Version None)
Quarter: 2007Q3

REPORT INFORMATION
  Report Type: 
  Country: None (occurrence: None)
  Receive Date: 20070904
  Receipt Date: 20070824
  Transmission Date: 20080115
  Serious: Yes (Death)
  Sender: FDA-Public Use
  Company Number: B0485164A

PATIENT
  Age: 54 Year
  Sex: Male

DRUGS (5)
  1. LAMIVUDINE [Suspect]
     Indication: HEPATITIS B
     Dates: start: 20001201
  2. PREDNISOLONE [Suspect]
     Indication: PRIMARY EFFUSION LYMPHOMA
     Dosage: 100 MG / CYCLIC /
     Dates: start: 20040430
  3. CYCLOPHOSPHAMIDE [Suspect]
     Indication: PRIMARY EFFUSION LYMPHOMA
     Dosage: 1500 MG / CYCLIC /
     Dates: start: 20040430
  4. DOXORUBICIN (FORMULATION UNKOWN) (DOXORUBICIN) [Suspect]
     Indication: PRIMARY EFFUSION LYMPHOMA
     Dosage: 100 MG / CYCLIC /
     Dates: start: 20040430
  5. VINCRISTINE [Suspect]
     Indication: PRIMARY EFFUSION LYMPHOMA
     Dosage: 2 MG / CYCLIC /
     Dates: start: 20040430

REACTIONS (8)
  - FEBRILE NEUTROPENIA [None]
  - HEPATIC ENCEPHALOPATHY [None]
  - HEPATIC FAILURE [None]
  - HEPATORENAL SYNDROME [None]
  - MITOCHONDRIAL DNA MUTATION [None]
  - PERITONITIS BACTERIAL [None]
  - PROTHROMBIN TIME PROLONGED [None]
  - PSEUDOMONAL SEPSIS [None]
